FAERS Safety Report 23593824 (Version 5)
Quarter: 2025Q2

REPORT INFORMATION
  Report Type: Other
  Country: GB (occurrence: GB)
  Receive Date: 20240304
  Receipt Date: 20250505
  Transmission Date: 20250717
  Serious: Yes (Other)
  Sender: BIOCON
  Company Number: GB-MYLANLABS-2020M1026187

PATIENT

DRUGS (622)
  1. ADALIMUMAB [Suspect]
     Active Substance: ADALIMUMAB
     Indication: Crohn^s disease
     Route: 065
  2. ADALIMUMAB [Suspect]
     Active Substance: ADALIMUMAB
     Indication: Colitis ulcerative
     Route: 058
     Dates: start: 201707
  3. ADALIMUMAB [Suspect]
     Active Substance: ADALIMUMAB
     Indication: Deep vein thrombosis
     Route: 065
     Dates: start: 201707
  4. ADALIMUMAB [Suspect]
     Active Substance: ADALIMUMAB
     Route: 042
     Dates: start: 20171019
  5. ADALIMUMAB [Suspect]
     Active Substance: ADALIMUMAB
     Route: 048
     Dates: start: 201707
  6. ADALIMUMAB [Suspect]
     Active Substance: ADALIMUMAB
     Route: 065
  7. ADALIMUMAB [Suspect]
     Active Substance: ADALIMUMAB
     Route: 058
  8. ADALIMUMAB [Suspect]
     Active Substance: ADALIMUMAB
     Route: 058
  9. WARFARIN [Suspect]
     Active Substance: WARFARIN
     Indication: Deep vein thrombosis
     Route: 065
  10. WARFARIN [Suspect]
     Active Substance: WARFARIN
     Indication: Colitis ulcerative
     Route: 065
     Dates: end: 2019
  11. WARFARIN [Suspect]
     Active Substance: WARFARIN
     Indication: Crohn^s disease
     Route: 048
     Dates: end: 2009
  12. WARFARIN [Suspect]
     Active Substance: WARFARIN
     Route: 065
     Dates: start: 2019
  13. WARFARIN [Suspect]
     Active Substance: WARFARIN
     Dosage: 1 DOSAGE FORM, QD
     Route: 048
     Dates: start: 201707
  14. WARFARIN [Suspect]
     Active Substance: WARFARIN
     Route: 048
     Dates: start: 201707
  15. WARFARIN [Suspect]
     Active Substance: WARFARIN
     Route: 065
     Dates: end: 2019
  16. WARFARIN [Suspect]
     Active Substance: WARFARIN
     Route: 065
     Dates: start: 2009
  17. WARFARIN [Suspect]
     Active Substance: WARFARIN
     Route: 048
     Dates: start: 2009, end: 2009
  18. WARFARIN [Suspect]
     Active Substance: WARFARIN
     Route: 065
     Dates: end: 2009
  19. WARFARIN [Suspect]
     Active Substance: WARFARIN
     Route: 065
     Dates: start: 2009, end: 2009
  20. WARFARIN [Suspect]
     Active Substance: WARFARIN
     Route: 048
     Dates: end: 2009
  21. WARFARIN [Suspect]
     Active Substance: WARFARIN
     Route: 065
     Dates: start: 201707
  22. WARFARIN [Suspect]
     Active Substance: WARFARIN
     Dosage: 8 DOSAGE FORM, QD
     Route: 048
     Dates: start: 2009
  23. WARFARIN [Suspect]
     Active Substance: WARFARIN
     Route: 048
  24. WARFARIN [Suspect]
     Active Substance: WARFARIN
     Dosage: 1 DOSAGE FORM, QD
     Route: 048
     Dates: start: 2009
  25. WARFARIN [Suspect]
     Active Substance: WARFARIN
     Route: 048
     Dates: start: 2009
  26. WARFARIN [Suspect]
     Active Substance: WARFARIN
     Route: 048
     Dates: start: 2009
  27. HYDROCORTISONE [Suspect]
     Active Substance: HYDROCORTISONE
     Indication: Colitis ulcerative
     Dosage: 1 DOSAGE FORM, QD
     Route: 048
     Dates: start: 201807, end: 201807
  28. HYDROCORTISONE [Suspect]
     Active Substance: HYDROCORTISONE
     Route: 048
  29. HYDROCORTISONE [Suspect]
     Active Substance: HYDROCORTISONE
     Dosage: 8 DOSAGE FORM, QD
     Route: 048
     Dates: start: 201807
  30. HYDROCORTISONE [Suspect]
     Active Substance: HYDROCORTISONE
     Route: 048
     Dates: start: 201807
  31. HYDROCORTISONE [Suspect]
     Active Substance: HYDROCORTISONE
     Route: 048
     Dates: start: 201707
  32. HYDROCORTISONE [Suspect]
     Active Substance: HYDROCORTISONE
     Dosage: 1 DOSAGE FORM, QD
     Route: 048
     Dates: start: 201807
  33. HYDROCORTISONE [Suspect]
     Active Substance: HYDROCORTISONE
     Route: 048
  34. HYDROCORTISONE [Suspect]
     Active Substance: HYDROCORTISONE
     Dosage: 8 DOSAGE FORM, QD
     Route: 048
     Dates: start: 201807
  35. HYDROCORTISONE [Suspect]
     Active Substance: HYDROCORTISONE
     Route: 065
  36. HYDROCORTISONE [Suspect]
     Active Substance: HYDROCORTISONE
     Dosage: 3 DOSAGE FORM, BID(6 DOSAGE FORM, QD)
     Route: 065
     Dates: start: 201610
  37. HYDROCORTISONE [Suspect]
     Active Substance: HYDROCORTISONE
     Dosage: 1 DOSAGE FORM, QD
     Route: 065
  38. HYDROCORTISONE [Suspect]
     Active Substance: HYDROCORTISONE
     Route: 065
  39. HYDROCORTISONE [Suspect]
     Active Substance: HYDROCORTISONE
     Route: 048
  40. HYDROCORTISONE [Suspect]
     Active Substance: HYDROCORTISONE
     Route: 065
  41. HYDROCORTISONE [Suspect]
     Active Substance: HYDROCORTISONE
     Dosage: 6 DOSAGE FORM, QD
     Route: 065
  42. HYDROCORTISONE [Suspect]
     Active Substance: HYDROCORTISONE
     Route: 065
  43. HYDROCORTISONE [Suspect]
     Active Substance: HYDROCORTISONE
     Dosage: 6 DOSAGE FORM, QD
     Route: 048
  44. HYDROCORTISONE [Suspect]
     Active Substance: HYDROCORTISONE
     Route: 048
  45. CORTIFOAM [Suspect]
     Active Substance: HYDROCORTISONE ACETATE
     Indication: Colitis ulcerative
     Route: 065
     Dates: start: 201707
  46. CORTIFOAM [Suspect]
     Active Substance: HYDROCORTISONE ACETATE
     Indication: Colitis ulcerative
     Route: 048
  47. CORTIFOAM [Suspect]
     Active Substance: HYDROCORTISONE ACETATE
     Route: 048
     Dates: start: 201707
  48. CORTIFOAM [Suspect]
     Active Substance: HYDROCORTISONE ACETATE
     Route: 065
  49. CORTIFOAM [Suspect]
     Active Substance: HYDROCORTISONE ACETATE
     Dosage: 1 DOSAGE FORM, QD
     Route: 048
     Dates: start: 201707
  50. CORTIFOAM [Suspect]
     Active Substance: HYDROCORTISONE ACETATE
     Dosage: 1 DOSAGE FORM, QD
     Route: 065
     Dates: start: 201707
  51. HYDROCORTISONE ACETATE [Suspect]
     Active Substance: HYDROCORTISONE ACETATE
     Indication: Colitis ulcerative
     Dosage: 1 DOSAGE FORM, QD
     Route: 048
  52. HYDROCORTISONE ACETATE [Suspect]
     Active Substance: HYDROCORTISONE ACETATE
     Indication: Crohn^s disease
     Route: 048
  53. HYDROCORTISONE ACETATE [Suspect]
     Active Substance: HYDROCORTISONE ACETATE
     Indication: Colitis ulcerative
     Route: 048
     Dates: start: 201707
  54. HYDROCORTISONE ACETATE [Suspect]
     Active Substance: HYDROCORTISONE ACETATE
     Dosage: 1 DOSAGE FORM
     Route: 048
     Dates: start: 201807
  55. HYDROCORTISONE ACETATE [Suspect]
     Active Substance: HYDROCORTISONE ACETATE
     Route: 048
     Dates: start: 201807
  56. HYDROCORTISONE ACETATE [Suspect]
     Active Substance: HYDROCORTISONE ACETATE
     Route: 048
  57. HYDROCORTISONE ACETATE [Suspect]
     Active Substance: HYDROCORTISONE ACETATE
     Route: 065
     Dates: start: 201601, end: 201610
  58. HYDROCORTISONE ACETATE [Suspect]
     Active Substance: HYDROCORTISONE ACETATE
     Dosage: 8 DOSAGE FORM, QD
     Route: 048
     Dates: start: 201707
  59. HYDROCORTISONE ACETATE [Suspect]
     Active Substance: HYDROCORTISONE ACETATE
     Dosage: 1 DOSAGE FORM, QD
     Route: 048
     Dates: start: 201707
  60. HYDROCORTISONE ACETATE [Suspect]
     Active Substance: HYDROCORTISONE ACETATE
     Route: 048
  61. HYDROCORTISONE ACETATE [Suspect]
     Active Substance: HYDROCORTISONE ACETATE
     Route: 065
  62. HYDROCORTISONE ACETATE [Suspect]
     Active Substance: HYDROCORTISONE ACETATE
     Route: 065
     Dates: start: 20160101, end: 20161001
  63. CORTIFOAM [Suspect]
     Active Substance: HYDROCORTISONE ACETATE
     Indication: Colitis ulcerative
     Route: 065
  64. CORTIFOAM [Suspect]
     Active Substance: HYDROCORTISONE ACETATE
     Route: 048
     Dates: start: 201707
  65. CORTIFOAM [Suspect]
     Active Substance: HYDROCORTISONE ACETATE
     Dosage: 1 DOSAGE FORM, QD
     Route: 065
     Dates: start: 201707
  66. CORTIFOAM [Suspect]
     Active Substance: HYDROCORTISONE ACETATE
     Route: 065
  67. CORTIFOAM [Suspect]
     Active Substance: HYDROCORTISONE ACETATE
     Dosage: 1 DOSAGE FORM, QD
     Route: 048
     Dates: start: 201707
  68. CORTIFOAM [Suspect]
     Active Substance: HYDROCORTISONE ACETATE
     Route: 065
  69. HYDROCORTISONE ACETATE [Suspect]
     Active Substance: HYDROCORTISONE ACETATE
     Indication: Product used for unknown indication
     Route: 042
  70. BUDESONIDE [Suspect]
     Active Substance: BUDESONIDE
     Indication: Colitis ulcerative
     Route: 048
  71. BUDESONIDE [Suspect]
     Active Substance: BUDESONIDE
     Route: 048
     Dates: start: 201707
  72. BUDESONIDE [Suspect]
     Active Substance: BUDESONIDE
     Route: 048
     Dates: start: 200707
  73. BUDESONIDE [Suspect]
     Active Substance: BUDESONIDE
     Dosage: 1 DOSAGE FORM, QD
     Route: 048
     Dates: start: 201707
  74. BUDESONIDE [Suspect]
     Active Substance: BUDESONIDE
     Route: 048
  75. BUDESONIDE [Suspect]
     Active Substance: BUDESONIDE
     Dosage: 8 DOSAGE FORM, QD
     Route: 048
     Dates: start: 201707
  76. BUDESONIDE [Suspect]
     Active Substance: BUDESONIDE
     Dosage: 1 DOSAGE FORM, QD
     Route: 048
  77. BUDESONIDE [Suspect]
     Active Substance: BUDESONIDE
     Indication: Colitis ulcerative
     Route: 048
     Dates: start: 200707
  78. BUDESONIDE [Suspect]
     Active Substance: BUDESONIDE
     Dosage: 1 DOSAGE FORM, QD
     Route: 048
     Dates: start: 201707
  79. BUDESONIDE [Suspect]
     Active Substance: BUDESONIDE
     Route: 048
     Dates: start: 201707
  80. BUDESONIDE [Suspect]
     Active Substance: BUDESONIDE
     Dosage: 8 DOSAGE FORM, QD
     Route: 048
     Dates: start: 201707
  81. BUDESONIDE [Suspect]
     Active Substance: BUDESONIDE
     Route: 048
  82. BUDESONIDE [Suspect]
     Active Substance: BUDESONIDE
     Dosage: 4 DOSAGE FORM, QD
     Route: 065
     Dates: start: 201707
  83. BUDESONIDE [Suspect]
     Active Substance: BUDESONIDE
     Route: 065
     Dates: start: 201707
  84. BUDESONIDE [Suspect]
     Active Substance: BUDESONIDE
     Dosage: 1 DOSAGE FORM, QD
     Route: 048
  85. BUDESONIDE [Suspect]
     Active Substance: BUDESONIDE
     Dosage: UNK UNK, QD
     Route: 065
  86. BUDESONIDE [Suspect]
     Active Substance: BUDESONIDE
     Dosage: UNK UNK, QD
     Route: 065
     Dates: start: 201707
  87. BUDESONIDE [Suspect]
     Active Substance: BUDESONIDE
     Route: 065
  88. BUDESONIDE [Suspect]
     Active Substance: BUDESONIDE
     Dosage: 245 DOSAGE FORM, QD
     Route: 048
  89. BUDESONIDE [Suspect]
     Active Substance: BUDESONIDE
     Dosage: 212 DOSAGE FORM, QD
     Route: 048
  90. ALBENDAZOLE [Suspect]
     Active Substance: ALBENDAZOLE
     Indication: Colitis ulcerative
     Route: 042
     Dates: start: 2017, end: 2017
  91. ALBENDAZOLE [Suspect]
     Active Substance: ALBENDAZOLE
     Indication: Deep vein thrombosis
  92. ASACOL [Suspect]
     Active Substance: MESALAMINE
     Indication: Colitis ulcerative
     Dosage: 4.8 GRAM, QD (0.8 G, 3 TABLETS TWO TIMES A DAY (4.8 G DAILY,  01-OCT-2016)
     Route: 065
     Dates: start: 20161001
  93. ASACOL [Suspect]
     Active Substance: MESALAMINE
     Dosage: 3 DOSAGE FORM, BID (Q12H)
     Route: 065
     Dates: start: 20161001
  94. ASACOL [Suspect]
     Active Substance: MESALAMINE
     Dosage: 2.4 GRAM, QD, 2.4 GRAM, 1 DOSE PER 1 D
     Route: 065
     Dates: start: 20161001
  95. ASACOL [Suspect]
     Active Substance: MESALAMINE
     Dosage: 3 GRAM, QD, 3 GRAM, 1 DOSE PER 1 D
     Route: 065
     Dates: start: 20161001
  96. ASACOL [Suspect]
     Active Substance: MESALAMINE
     Dosage: 3 DOSAGE FORM, BID
     Route: 065
     Dates: start: 201610
  97. ASACOL [Suspect]
     Active Substance: MESALAMINE
     Route: 065
     Dates: start: 20161001
  98. ASACOL [Suspect]
     Active Substance: MESALAMINE
     Dosage: 3 GRAM, QD
     Route: 065
     Dates: start: 20161001
  99. ASACOL [Suspect]
     Active Substance: MESALAMINE
     Dosage: 6 DOSAGE FORM, BID
     Route: 065
     Dates: start: 201610
  100. ASACOL [Suspect]
     Active Substance: MESALAMINE
     Dosage: 6 DOSAGE FORM, QD (3 DOSAGE FORM, BID)
     Route: 065
     Dates: start: 20161001
  101. ASACOL [Suspect]
     Active Substance: MESALAMINE
     Route: 065
     Dates: start: 20170101, end: 20170901
  102. ASACOL [Suspect]
     Active Substance: MESALAMINE
     Route: 065
     Dates: start: 20161001
  103. ASACOL [Suspect]
     Active Substance: MESALAMINE
     Route: 065
     Dates: start: 201610
  104. ASACOL [Suspect]
     Active Substance: MESALAMINE
     Route: 065
     Dates: start: 201707
  105. ASACOL [Suspect]
     Active Substance: MESALAMINE
     Dosage: 4.8 GRAM, QD, 4.8 GRAM, 1 DOSE PER 1 D
     Route: 065
     Dates: start: 201610
  106. ASACOL [Suspect]
     Active Substance: MESALAMINE
     Route: 065
  107. ASACOL [Suspect]
     Active Substance: MESALAMINE
     Dosage: 4.8 GRAM, QD
     Route: 065
  108. ASACOL [Suspect]
     Active Substance: MESALAMINE
     Route: 065
     Dates: start: 20170101, end: 20170901
  109. ASACOL [Suspect]
     Active Substance: MESALAMINE
     Dosage: 12 DOSAGE FORM, QD, 6 DOSAGE FORM, 2 DOSE PER 1 D
     Route: 065
     Dates: start: 20170101, end: 20170901
  110. ASACOL [Suspect]
     Active Substance: MESALAMINE
     Dosage: 6 DOSAGE FORM, QD 6 DOSAGE FORM, 1 DOSE PER 1 D
     Route: 065
     Dates: start: 20161001
  111. ASACOL [Suspect]
     Active Substance: MESALAMINE
     Dosage: 1 DOSAGE FORM, QD
     Route: 065
  112. ASACOL [Suspect]
     Active Substance: MESALAMINE
     Dosage: 6 DOSAGE FORM, QD, 3 DOSAGE FORM, 2 DOSE PER 1 D
     Route: 065
  113. ASACOL [Suspect]
     Active Substance: MESALAMINE
     Route: 065
     Dates: start: 20161001
  114. ASACOL [Suspect]
     Active Substance: MESALAMINE
     Dosage: 1 DOSAGE FORM, QD
     Route: 065
  115. ASACOL [Suspect]
     Active Substance: MESALAMINE
     Dosage: 40 MILLIGRAM, QD
     Route: 065
  116. ASACOL [Suspect]
     Active Substance: MESALAMINE
     Dosage: 50 MILLIGRAM, QD
     Route: 065
  117. ASACOL [Suspect]
     Active Substance: MESALAMINE
     Dosage: 6 DOSAGE FORM, QD
     Route: 065
  118. ASACOL [Suspect]
     Active Substance: MESALAMINE
     Dosage: 12 DOSAGE FORM, QD
     Route: 065
  119. ASACOL [Suspect]
     Active Substance: MESALAMINE
     Indication: Colitis ulcerative
     Route: 065
     Dates: start: 201610
  120. ASACOL [Suspect]
     Active Substance: MESALAMINE
     Dosage: 8 DOSAGE FORM, QD
     Route: 065
     Dates: start: 201707
  121. ASACOL [Suspect]
     Active Substance: MESALAMINE
     Dosage: 3 GRAM, QD
     Route: 065
     Dates: start: 20161001
  122. ASACOL [Suspect]
     Active Substance: MESALAMINE
     Dosage: 4.8 GRAM, QD
     Route: 065
     Dates: start: 20161001
  123. ASACOL [Suspect]
     Active Substance: MESALAMINE
     Route: 065
     Dates: start: 20161001
  124. ASACOL [Suspect]
     Active Substance: MESALAMINE
     Dosage: 6 DOSAGE FORM, QD
     Route: 065
     Dates: start: 20161001
  125. ASACOL [Suspect]
     Active Substance: MESALAMINE
     Dosage: 2.4 GRAM, QD
     Route: 065
     Dates: start: 20161001
  126. ASACOL [Suspect]
     Active Substance: MESALAMINE
     Route: 065
     Dates: start: 201610
  127. ASACOL [Suspect]
     Active Substance: MESALAMINE
     Dosage: 2.4 GRAM, QD (1 DOSAGE FORM)
     Route: 065
     Dates: start: 201707
  128. ASACOL [Suspect]
     Active Substance: MESALAMINE
     Indication: Product used for unknown indication
     Dosage: 6 DOSAGE FORM, QD
     Route: 065
     Dates: start: 201610
  129. ENTYVIO [Suspect]
     Active Substance: VEDOLIZUMAB
     Indication: Colitis ulcerative
     Route: 042
     Dates: end: 2017
  130. ENTYVIO [Suspect]
     Active Substance: VEDOLIZUMAB
     Indication: Deep vein thrombosis
     Route: 042
     Dates: start: 2017, end: 2017
  131. ENTYVIO [Suspect]
     Active Substance: VEDOLIZUMAB
     Route: 042
     Dates: start: 2017
  132. ENTYVIO [Suspect]
     Active Substance: VEDOLIZUMAB
     Route: 042
     Dates: start: 2017, end: 2017
  133. ENTYVIO [Suspect]
     Active Substance: VEDOLIZUMAB
     Route: 065
  134. ENTYVIO [Suspect]
     Active Substance: VEDOLIZUMAB
     Route: 065
  135. ENTYVIO [Suspect]
     Active Substance: VEDOLIZUMAB
     Dosage: 8 DOSAGE FORM, QD
     Route: 048
     Dates: start: 201807
  136. ENTYVIO [Suspect]
     Active Substance: VEDOLIZUMAB
     Route: 065
     Dates: start: 201707
  137. ENTYVIO [Suspect]
     Active Substance: VEDOLIZUMAB
     Route: 065
     Dates: start: 2017
  138. ENTYVIO [Suspect]
     Active Substance: VEDOLIZUMAB
     Route: 048
  139. ENTYVIO [Suspect]
     Active Substance: VEDOLIZUMAB
     Route: 065
  140. ENTYVIO [Suspect]
     Active Substance: VEDOLIZUMAB
     Dosage: 1 DOSAGE FORM, QD
     Route: 048
  141. ENTYVIO [Suspect]
     Active Substance: VEDOLIZUMAB
     Route: 065
  142. ENTYVIO [Suspect]
     Active Substance: VEDOLIZUMAB
     Dosage: UNK UNK, QD
     Route: 065
  143. ENTYVIO [Suspect]
     Active Substance: VEDOLIZUMAB
     Route: 065
  144. ENTYVIO [Suspect]
     Active Substance: VEDOLIZUMAB
     Route: 042
  145. ENTYVIO [Suspect]
     Active Substance: VEDOLIZUMAB
     Route: 042
  146. ENTYVIO [Suspect]
     Active Substance: VEDOLIZUMAB
     Indication: Colitis ulcerative
     Route: 048
     Dates: start: 2017, end: 2017
  147. ENTYVIO [Suspect]
     Active Substance: VEDOLIZUMAB
     Route: 048
     Dates: start: 2017, end: 2017
  148. ENTYVIO [Suspect]
     Active Substance: VEDOLIZUMAB
     Route: 048
     Dates: start: 201707
  149. ENTYVIO [Suspect]
     Active Substance: VEDOLIZUMAB
     Route: 048
     Dates: start: 2017, end: 2017
  150. PREDNISONE [Suspect]
     Active Substance: PREDNISONE
     Indication: Colitis ulcerative
     Route: 065
  151. PREDNISONE [Suspect]
     Active Substance: PREDNISONE
     Route: 065
     Dates: start: 2009, end: 2009
  152. PREDNISONE [Suspect]
     Active Substance: PREDNISONE
     Route: 065
     Dates: start: 2017
  153. PREDNISONE [Suspect]
     Active Substance: PREDNISONE
     Route: 042
     Dates: start: 2017, end: 2017
  154. PREDNISONE [Suspect]
     Active Substance: PREDNISONE
     Route: 065
     Dates: start: 2009, end: 2009
  155. PREDNISONE [Suspect]
     Active Substance: PREDNISONE
     Route: 065
     Dates: start: 2009, end: 2016
  156. PREDNISONE [Suspect]
     Active Substance: PREDNISONE
     Route: 065
     Dates: start: 2009, end: 2009
  157. PREDNISONE [Suspect]
     Active Substance: PREDNISONE
     Route: 065
     Dates: start: 2017
  158. PREDNISONE [Suspect]
     Active Substance: PREDNISONE
     Route: 065
     Dates: start: 2009
  159. PREDNISONE [Suspect]
     Active Substance: PREDNISONE
     Route: 065
  160. PREDNISONE [Suspect]
     Active Substance: PREDNISONE
     Route: 065
  161. PREDNISONE [Suspect]
     Active Substance: PREDNISONE
     Dosage: 40 MILLIGRAM, QD
     Route: 065
  162. PREDNISONE [Suspect]
     Active Substance: PREDNISONE
     Dosage: 50 MILLIGRAM, QD
     Route: 065
  163. PREDNISONE [Suspect]
     Active Substance: PREDNISONE
     Route: 065
  164. INFLIXIMAB [Suspect]
     Active Substance: INFLIXIMAB
     Indication: Colitis ulcerative
     Route: 042
     Dates: start: 201709
  165. INFLIXIMAB [Suspect]
     Active Substance: INFLIXIMAB
     Indication: Crohn^s disease
     Route: 042
  166. INFLIXIMAB [Suspect]
     Active Substance: INFLIXIMAB
     Route: 042
     Dates: start: 201709
  167. INFLIXIMAB [Suspect]
     Active Substance: INFLIXIMAB
     Route: 042
     Dates: start: 20170101, end: 20170901
  168. INFLIXIMAB [Suspect]
     Active Substance: INFLIXIMAB
     Route: 042
     Dates: start: 20170101, end: 20170901
  169. INFLIXIMAB [Suspect]
     Active Substance: INFLIXIMAB
     Route: 042
     Dates: start: 201709
  170. INFLIXIMAB [Suspect]
     Active Substance: INFLIXIMAB
     Route: 042
     Dates: start: 20171019
  171. INFLIXIMAB [Suspect]
     Active Substance: INFLIXIMAB
     Route: 042
     Dates: start: 20171019
  172. INFLIXIMAB [Suspect]
     Active Substance: INFLIXIMAB
     Route: 042
     Dates: start: 20171019
  173. INFLIXIMAB [Suspect]
     Active Substance: INFLIXIMAB
     Route: 042
     Dates: start: 20170101, end: 20170901
  174. INFLIXIMAB [Suspect]
     Active Substance: INFLIXIMAB
     Route: 042
  175. INFLIXIMAB [Suspect]
     Active Substance: INFLIXIMAB
     Route: 042
     Dates: start: 20171019
  176. INFLIXIMAB [Suspect]
     Active Substance: INFLIXIMAB
     Route: 042
     Dates: start: 20171019
  177. INFLIXIMAB [Suspect]
     Active Substance: INFLIXIMAB
     Route: 042
     Dates: end: 201709
  178. INFLIXIMAB [Suspect]
     Active Substance: INFLIXIMAB
     Route: 042
     Dates: start: 20170101, end: 20170901
  179. BUDESONIDE [Suspect]
     Active Substance: BUDESONIDE
     Indication: Colitis ulcerative
     Route: 048
  180. BUDESONIDE [Suspect]
     Active Substance: BUDESONIDE
     Route: 048
     Dates: start: 200707
  181. BUDESONIDE [Suspect]
     Active Substance: BUDESONIDE
     Dosage: 1 DOSAGE FORM, QD
     Route: 048
     Dates: start: 20170701
  182. BUDESONIDE [Suspect]
     Active Substance: BUDESONIDE
     Route: 048
  183. BUDESONIDE [Suspect]
     Active Substance: BUDESONIDE
     Dosage: 1 DOSAGE FORM, QD
     Route: 048
     Dates: start: 201707
  184. BUDESONIDE [Suspect]
     Active Substance: BUDESONIDE
     Route: 048
     Dates: start: 201707
  185. BUDESONIDE [Suspect]
     Active Substance: BUDESONIDE
     Route: 048
     Dates: start: 201707
  186. BUDESONIDE [Suspect]
     Active Substance: BUDESONIDE
     Route: 065
     Dates: start: 201707
  187. BUDESONIDE [Suspect]
     Active Substance: BUDESONIDE
     Route: 048
     Dates: start: 200707
  188. MESALAMINE [Suspect]
     Active Substance: MESALAMINE
     Indication: Colitis ulcerative
     Route: 065
     Dates: start: 20160101, end: 201610
  189. MESALAMINE [Suspect]
     Active Substance: MESALAMINE
     Route: 048
     Dates: start: 201601, end: 201610
  190. MESALAMINE [Suspect]
     Active Substance: MESALAMINE
     Route: 048
     Dates: start: 20160101, end: 201610
  191. MESALAMINE [Suspect]
     Active Substance: MESALAMINE
     Route: 065
     Dates: start: 20160101, end: 20161001
  192. MESALAMINE [Suspect]
     Active Substance: MESALAMINE
     Dosage: 6 DOSAGE FORM, QD (BID)
     Route: 065
     Dates: start: 201610
  193. MESALAMINE [Suspect]
     Active Substance: MESALAMINE
     Dosage: 6 DOSAGE FORM, QD
     Route: 065
     Dates: start: 20161001
  194. MESALAMINE [Suspect]
     Active Substance: MESALAMINE
     Route: 065
     Dates: start: 201707
  195. MESALAMINE [Suspect]
     Active Substance: MESALAMINE
     Route: 065
     Dates: start: 201709, end: 201709
  196. MESALAMINE [Suspect]
     Active Substance: MESALAMINE
     Route: 065
     Dates: start: 2017, end: 201709
  197. MESALAMINE [Suspect]
     Active Substance: MESALAMINE
     Dosage: 4.8 GRAM, QD
     Route: 065
     Dates: start: 20170101
  198. MESALAMINE [Suspect]
     Active Substance: MESALAMINE
     Route: 065
     Dates: start: 20170101, end: 20170901
  199. MESALAMINE [Suspect]
     Active Substance: MESALAMINE
     Dosage: 2.4 GRAM, QD
     Route: 065
     Dates: start: 20161001
  200. MESALAMINE [Suspect]
     Active Substance: MESALAMINE
     Route: 065
     Dates: start: 2009
  201. MESALAMINE [Suspect]
     Active Substance: MESALAMINE
     Dosage: 4.8 GRAM, QD
     Route: 065
     Dates: start: 20161001
  202. MESALAMINE [Suspect]
     Active Substance: MESALAMINE
     Route: 065
     Dates: start: 20170101, end: 20170901
  203. MESALAMINE [Suspect]
     Active Substance: MESALAMINE
     Route: 065
  204. MESALAMINE [Suspect]
     Active Substance: MESALAMINE
     Route: 065
     Dates: start: 201601, end: 201610
  205. MESALAMINE [Suspect]
     Active Substance: MESALAMINE
     Route: 065
     Dates: start: 202109, end: 202109
  206. MESALAMINE [Suspect]
     Active Substance: MESALAMINE
     Route: 048
     Dates: start: 201706
  207. MESALAMINE [Suspect]
     Active Substance: MESALAMINE
     Route: 048
     Dates: start: 20160101, end: 201610
  208. MESALAMINE [Suspect]
     Active Substance: MESALAMINE
     Route: 048
     Dates: start: 20160101, end: 20161001
  209. MESALAMINE [Suspect]
     Active Substance: MESALAMINE
     Route: 065
     Dates: start: 2017, end: 201709
  210. HUMIRA [Suspect]
     Active Substance: ADALIMUMAB
     Indication: Deep vein thrombosis
     Route: 065
  211. HUMIRA [Suspect]
     Active Substance: ADALIMUMAB
     Indication: Crohn^s disease
  212. HUMIRA [Suspect]
     Active Substance: ADALIMUMAB
     Indication: Deep vein thrombosis
     Route: 048
     Dates: start: 201707
  213. HUMIRA [Suspect]
     Active Substance: ADALIMUMAB
     Indication: Crohn^s disease
     Route: 065
     Dates: start: 201709, end: 201709
  214. CORTISONE ACETATE [Suspect]
     Active Substance: CORTISONE ACETATE
     Indication: Product used for unknown indication
     Route: 065
  215. PARA-AMINOSALICYLIC ACID [Suspect]
     Active Substance: AMINOSALICYLIC ACID
     Indication: Colitis ulcerative
     Route: 048
  216. PARA-AMINOSALICYLIC ACID [Suspect]
     Active Substance: AMINOSALICYLIC ACID
     Indication: Deep vein thrombosis
  217. MESALAMINE [Suspect]
     Active Substance: MESALAMINE
     Indication: Product used for unknown indication
     Route: 065
  218. MESALAMINE [Suspect]
     Active Substance: MESALAMINE
     Indication: Colitis ulcerative
     Route: 065
  219. MESALAMINE [Suspect]
     Active Substance: MESALAMINE
     Route: 048
     Dates: start: 2017
  220. MESALAMINE [Suspect]
     Active Substance: MESALAMINE
     Indication: Colitis ulcerative
     Route: 065
     Dates: start: 2009
  221. MESALAMINE [Suspect]
     Active Substance: MESALAMINE
     Route: 048
     Dates: start: 20160101, end: 20161001
  222. MESALAMINE [Suspect]
     Active Substance: MESALAMINE
     Route: 065
     Dates: start: 20170101, end: 20170901
  223. MESALAMINE [Suspect]
     Active Substance: MESALAMINE
     Route: 048
     Dates: start: 20160101, end: 20161001
  224. MESALAMINE [Suspect]
     Active Substance: MESALAMINE
     Route: 048
     Dates: start: 20170101, end: 20170901
  225. MESALAMINE [Suspect]
     Active Substance: MESALAMINE
     Route: 065
     Dates: start: 201709, end: 201709
  226. MESALAMINE [Suspect]
     Active Substance: MESALAMINE
     Dosage: 4.8 MILLIGRAM, QD
     Route: 065
     Dates: start: 20170101
  227. MESALAMINE [Suspect]
     Active Substance: MESALAMINE
     Route: 065
     Dates: start: 201610
  228. MESALAMINE [Suspect]
     Active Substance: MESALAMINE
     Route: 065
     Dates: start: 2017, end: 201709
  229. MESALAMINE [Suspect]
     Active Substance: MESALAMINE
     Dosage: 6 DOSAGE FORM, QD
     Route: 065
     Dates: start: 20161001
  230. MESALAMINE [Suspect]
     Active Substance: MESALAMINE
     Route: 065
     Dates: start: 201709, end: 201709
  231. MESALAMINE [Suspect]
     Active Substance: MESALAMINE
     Dosage: 2.4 GRAM, QD
     Route: 065
     Dates: start: 20161001
  232. MESALAMINE [Suspect]
     Active Substance: MESALAMINE
     Dosage: 4.8 MILLIGRAM, QD
     Route: 065
     Dates: start: 20161001
  233. MESALAMINE [Suspect]
     Active Substance: MESALAMINE
     Route: 065
     Dates: start: 202109, end: 202109
  234. MESALAMINE [Suspect]
     Active Substance: MESALAMINE
     Route: 065
     Dates: start: 201707
  235. MESALAMINE [Suspect]
     Active Substance: MESALAMINE
     Route: 065
     Dates: start: 20170901, end: 2019
  236. MESALAMINE [Suspect]
     Active Substance: MESALAMINE
     Dosage: 6 DOSAGE FORM, QD(3 DOSAGE FORM, BID )
     Route: 065
     Dates: start: 201610
  237. MESALAMINE [Suspect]
     Active Substance: MESALAMINE
     Dosage: 2.4 GRAM, QD (0.8 G, 3 TABLETS TWO TIMES A DAY (4.8 G DAILY))
     Route: 065
     Dates: start: 20161001
  238. MESALAMINE [Suspect]
     Active Substance: MESALAMINE
     Route: 065
     Dates: start: 201601, end: 201610
  239. MESALAMINE [Suspect]
     Active Substance: MESALAMINE
     Route: 065
     Dates: start: 201707
  240. MESALAMINE [Suspect]
     Active Substance: MESALAMINE
     Dosage: 3 DOSAGE FORM, BID
     Route: 065
     Dates: start: 201601
  241. MESALAMINE [Suspect]
     Active Substance: MESALAMINE
     Route: 065
     Dates: start: 20170101, end: 20171001
  242. MESALAMINE [Suspect]
     Active Substance: MESALAMINE
     Route: 065
     Dates: start: 2017, end: 201709
  243. MESALAMINE [Suspect]
     Active Substance: MESALAMINE
     Dosage: 6 DOSAGE FORM, QD
     Route: 065
     Dates: start: 20161001
  244. MESALAMINE [Suspect]
     Active Substance: MESALAMINE
     Route: 048
     Dates: start: 201706
  245. MESALAMINE [Suspect]
     Active Substance: MESALAMINE
     Dosage: 3 GRAM, QD
     Route: 065
     Dates: start: 20160110
  246. MESALAMINE [Suspect]
     Active Substance: MESALAMINE
     Route: 065
     Dates: start: 20170101, end: 20171001
  247. MESALAMINE [Suspect]
     Active Substance: MESALAMINE
     Dosage: 4.8 GRAM, QD
     Route: 065
     Dates: start: 20161001
  248. MESALAMINE [Suspect]
     Active Substance: MESALAMINE
     Dosage: 6 DOSAGE FORM, QD (3 DOSAGE FORM, BID)
     Route: 065
     Dates: start: 2016
  249. MESALAMINE [Suspect]
     Active Substance: MESALAMINE
     Route: 065
     Dates: start: 2017, end: 201709
  250. MESALAMINE [Suspect]
     Active Substance: MESALAMINE
     Dosage: 4.8 GRAM, QD
     Route: 065
     Dates: start: 20161001
  251. MESALAMINE [Suspect]
     Active Substance: MESALAMINE
     Route: 065
     Dates: start: 201707, end: 201709
  252. MESALAMINE [Suspect]
     Active Substance: MESALAMINE
     Dosage: 1 DOSAGE FORM, QD
     Route: 065
     Dates: start: 201707
  253. VEDOLIZUMAB [Suspect]
     Active Substance: VEDOLIZUMAB
     Indication: Colitis ulcerative
     Route: 065
     Dates: end: 2017
  254. VEDOLIZUMAB [Suspect]
     Active Substance: VEDOLIZUMAB
     Indication: Deep vein thrombosis
     Dosage: 1 DOSAGE FORM, QD
     Route: 048
  255. VEDOLIZUMAB [Suspect]
     Active Substance: VEDOLIZUMAB
     Route: 048
     Dates: start: 2017, end: 2017
  256. VEDOLIZUMAB [Suspect]
     Active Substance: VEDOLIZUMAB
     Route: 065
     Dates: start: 2017
  257. VEDOLIZUMAB [Suspect]
     Active Substance: VEDOLIZUMAB
     Dosage: 1 DOSAGE FORM, QD
     Route: 048
     Dates: start: 201807
  258. VEDOLIZUMAB [Suspect]
     Active Substance: VEDOLIZUMAB
     Route: 065
     Dates: end: 2017
  259. VEDOLIZUMAB [Suspect]
     Active Substance: VEDOLIZUMAB
     Route: 065
     Dates: start: 2009, end: 2019
  260. VEDOLIZUMAB [Suspect]
     Active Substance: VEDOLIZUMAB
     Route: 065
     Dates: start: 201807
  261. VEDOLIZUMAB [Suspect]
     Active Substance: VEDOLIZUMAB
     Route: 042
     Dates: start: 2017, end: 2017
  262. MESALAMINE [Suspect]
     Active Substance: MESALAMINE
     Indication: Colitis ulcerative
     Route: 042
     Dates: start: 2017, end: 2017
  263. MESALAMINE [Suspect]
     Active Substance: MESALAMINE
     Route: 048
     Dates: start: 20160101, end: 20161001
  264. MESALAMINE [Suspect]
     Active Substance: MESALAMINE
     Route: 065
     Dates: start: 201601, end: 201610
  265. MESALAMINE [Suspect]
     Active Substance: MESALAMINE
     Route: 048
     Dates: start: 20160101, end: 201610
  266. MESALAMINE [Suspect]
     Active Substance: MESALAMINE
     Route: 048
     Dates: start: 20160101, end: 20160101
  267. MESALAMINE [Suspect]
     Active Substance: MESALAMINE
     Route: 065
  268. MESALAMINE [Suspect]
     Active Substance: MESALAMINE
     Route: 065
     Dates: start: 201601
  269. MESALAMINE [Suspect]
     Active Substance: MESALAMINE
     Dosage: 50 MILLIGRAM, QD, 1 DOSE PER 1 D
     Route: 065
  270. MESALAMINE [Suspect]
     Active Substance: MESALAMINE
     Dosage: 6 DOSAGE FORMS, QD (3 DOSAGE FORM, 2 DOSE PER 1 D)
     Route: 065
  271. MESALAMINE [Suspect]
     Active Substance: MESALAMINE
     Route: 065
  272. MESALAMINE [Suspect]
     Active Substance: MESALAMINE
     Dosage: 40 MILLIGRAM, QD
     Route: 065
  273. MESALAMINE [Suspect]
     Active Substance: MESALAMINE
     Dosage: 1 DOSAGE FORM, QD
     Route: 065
  274. MESALAMINE [Suspect]
     Active Substance: MESALAMINE
     Route: 065
  275. MESALAMINE [Suspect]
     Active Substance: MESALAMINE
     Dosage: 12 DOSAGE FORM, QD
     Route: 065
  276. MESALAMINE [Suspect]
     Active Substance: MESALAMINE
     Dosage: 4.8 GRAM, QD
     Route: 065
  277. MESALAMINE [Suspect]
     Active Substance: MESALAMINE
     Dosage: 60 DOSAGE FORM, QD (30 DOSAGE FORM, 2 DOSE PER 1 D)
     Route: 065
  278. MESALAMINE [Suspect]
     Active Substance: MESALAMINE
     Dosage: 3 GRAM, QD
     Route: 065
  279. MESALAMINE [Suspect]
     Active Substance: MESALAMINE
     Dosage: 24 DOSAGE FORM, QD
     Route: 065
  280. MESALAMINE [Suspect]
     Active Substance: MESALAMINE
     Dosage: 12 DOSAGE FORM, QD (6 DOSAGE FORM, 2 DOSE PER 1 D)
     Route: 065
  281. MESALAMINE [Suspect]
     Active Substance: MESALAMINE
     Dosage: 2.4 GRAM, QMONTH
     Route: 065
  282. MESALAMINE [Suspect]
     Active Substance: MESALAMINE
     Route: 048
  283. MESALAMINE [Suspect]
     Active Substance: MESALAMINE
     Route: 048
  284. VEDOLIZUMAB [Suspect]
     Active Substance: VEDOLIZUMAB
     Indication: Deep vein thrombosis
     Route: 042
     Dates: start: 2017
  285. VEDOLIZUMAB [Suspect]
     Active Substance: VEDOLIZUMAB
     Indication: Colitis ulcerative
     Route: 042
     Dates: start: 2019
  286. VEDOLIZUMAB [Suspect]
     Active Substance: VEDOLIZUMAB
     Route: 042
     Dates: start: 2017, end: 2017
  287. PANADOL [Suspect]
     Active Substance: ACETAMINOPHEN
     Indication: Ill-defined disorder
     Route: 065
  288. MESALAMINE [Suspect]
     Active Substance: MESALAMINE
     Indication: Colitis ulcerative
     Route: 065
  289. MESALAMINE [Suspect]
     Active Substance: MESALAMINE
     Route: 065
     Dates: start: 20170101, end: 20170901
  290. MESALAMINE [Suspect]
     Active Substance: MESALAMINE
     Route: 065
     Dates: start: 2017, end: 201709
  291. MESALAMINE [Suspect]
     Active Substance: MESALAMINE
     Route: 065
     Dates: start: 201709, end: 201709
  292. MESALAMINE [Suspect]
     Active Substance: MESALAMINE
     Dosage: 2.4 GRAM, QD, 0.8 G, 3 TABLETS TWO TIMES A DAY (4.8 G DAILY)
     Route: 065
     Dates: start: 20161001
  293. MESALAMINE [Suspect]
     Active Substance: MESALAMINE
     Route: 065
     Dates: start: 201610
  294. MESALAMINE [Suspect]
     Active Substance: MESALAMINE
     Route: 065
     Dates: start: 201601, end: 201610
  295. MESALAMINE [Suspect]
     Active Substance: MESALAMINE
     Route: 048
     Dates: start: 20160101, end: 20161001
  296. MESALAMINE [Suspect]
     Active Substance: MESALAMINE
     Route: 048
     Dates: start: 20170101, end: 20170901
  297. MESALAMINE [Suspect]
     Active Substance: MESALAMINE
     Dosage: 6 DOSAGE FORM, QD (0.8 G, 3 TABLETS TWO TIMES A DAY (4.8 G DAILY)
     Route: 048
     Dates: start: 20161001
  298. MESALAMINE [Suspect]
     Active Substance: MESALAMINE
     Dosage: 4.8 GRAM, QD
     Route: 065
     Dates: start: 20161001
  299. MESALAMINE [Suspect]
     Active Substance: MESALAMINE
     Route: 065
     Dates: start: 2016
  300. MESALAMINE [Suspect]
     Active Substance: MESALAMINE
     Route: 048
     Dates: start: 20170101, end: 20171001
  301. MESALAMINE [Suspect]
     Active Substance: MESALAMINE
     Route: 048
     Dates: start: 201707
  302. MESALAMINE [Suspect]
     Active Substance: MESALAMINE
     Route: 065
     Dates: start: 20170101
  303. MESALAMINE [Suspect]
     Active Substance: MESALAMINE
     Dosage: 50 MILLIGRAM, QD
     Route: 065
     Dates: start: 20160101, end: 20161001
  304. MESALAMINE [Suspect]
     Active Substance: MESALAMINE
     Route: 048
     Dates: start: 20170101, end: 20170901
  305. MESALAMINE [Suspect]
     Active Substance: MESALAMINE
     Dosage: 4.8 MILLIGRAM, QD
     Route: 065
     Dates: start: 20161001
  306. MESALAMINE [Suspect]
     Active Substance: MESALAMINE
     Route: 065
     Dates: start: 2017
  307. MESALAMINE [Suspect]
     Active Substance: MESALAMINE
     Dosage: 4.8 MILLIGRAM, QD
     Route: 065
     Dates: start: 20170101
  308. MESALAMINE [Suspect]
     Active Substance: MESALAMINE
     Route: 065
     Dates: start: 201709, end: 201709
  309. MESALAMINE [Suspect]
     Active Substance: MESALAMINE
     Dosage: 4.8 GRAM, QD
     Route: 065
     Dates: start: 20160101, end: 201709
  310. MESALAMINE [Suspect]
     Active Substance: MESALAMINE
     Route: 065
     Dates: start: 20160101, end: 20170901
  311. MESALAMINE [Suspect]
     Active Substance: MESALAMINE
     Route: 065
  312. MESALAMINE [Suspect]
     Active Substance: MESALAMINE
     Route: 065
  313. MESALAMINE [Suspect]
     Active Substance: MESALAMINE
     Route: 065
  314. MESALAMINE [Suspect]
     Active Substance: MESALAMINE
     Dosage: 4.8 GRAM, QD
     Route: 065
  315. MESALAMINE [Suspect]
     Active Substance: MESALAMINE
     Route: 065
  316. MESALAMINE [Suspect]
     Active Substance: MESALAMINE
     Route: 065
  317. MESALAMINE [Suspect]
     Active Substance: MESALAMINE
     Route: 065
  318. MESALAMINE [Suspect]
     Active Substance: MESALAMINE
     Route: 065
  319. MESALAMINE [Suspect]
     Active Substance: MESALAMINE
     Route: 065
  320. HYDROCORTISONE SODIUM SUCCINATE [Suspect]
     Active Substance: HYDROCORTISONE SODIUM SUCCINATE
     Indication: Colitis ulcerative
     Dosage: 1 DOSAGE FORM, QD
     Route: 065
  321. SULFASALAZINE [Suspect]
     Active Substance: SULFASALAZINE
     Indication: Colitis ulcerative
     Route: 065
     Dates: start: 2009, end: 2009
  322. SULFASALAZINE [Suspect]
     Active Substance: SULFASALAZINE
     Indication: Arthritis
     Dosage: 3 MILLIGRAM, QD
     Route: 048
  323. SULFASALAZINE [Suspect]
     Active Substance: SULFASALAZINE
     Route: 065
     Dates: start: 20091001, end: 20161001
  324. SULFASALAZINE [Suspect]
     Active Substance: SULFASALAZINE
     Route: 065
     Dates: start: 20090101, end: 20160101
  325. SULFASALAZINE [Suspect]
     Active Substance: SULFASALAZINE
     Route: 065
     Dates: start: 20160101, end: 20160101
  326. SULFASALAZINE [Suspect]
     Active Substance: SULFASALAZINE
     Dosage: 5 MILLIGRAM, QD
     Route: 048
  327. SULFASALAZINE [Suspect]
     Active Substance: SULFASALAZINE
     Route: 065
     Dates: start: 201709, end: 201709
  328. SULFASALAZINE [Suspect]
     Active Substance: SULFASALAZINE
     Route: 065
     Dates: start: 2009, end: 2016
  329. SULFASALAZINE [Suspect]
     Active Substance: SULFASALAZINE
     Route: 065
  330. SULFASALAZINE [Suspect]
     Active Substance: SULFASALAZINE
     Route: 065
  331. SULFASALAZINE [Suspect]
     Active Substance: SULFASALAZINE
     Route: 065
  332. SULFASALAZINE [Suspect]
     Active Substance: SULFASALAZINE
     Route: 065
  333. SULFASALAZINE [Suspect]
     Active Substance: SULFASALAZINE
     Route: 065
  334. SULFASALAZINE [Suspect]
     Active Substance: SULFASALAZINE
     Route: 065
  335. BUDESONIDE [Suspect]
     Active Substance: BUDESONIDE
     Indication: Colitis ulcerative
     Dosage: 1 DOSAGE FORM, QD
     Route: 048
     Dates: start: 201707, end: 201707
  336. BUDESONIDE [Suspect]
     Active Substance: BUDESONIDE
     Route: 048
     Dates: start: 200707
  337. BUDESONIDE [Suspect]
     Active Substance: BUDESONIDE
     Route: 048
     Dates: start: 201707
  338. BUDESONIDE [Suspect]
     Active Substance: BUDESONIDE
     Route: 048
     Dates: start: 201707
  339. BUDESONIDE [Suspect]
     Active Substance: BUDESONIDE
     Dosage: 1 DOSAGE FORM, QD
     Route: 048
     Dates: start: 20170701
  340. BUDESONIDE [Suspect]
     Active Substance: BUDESONIDE
     Route: 048
  341. BUDESONIDE [Suspect]
     Active Substance: BUDESONIDE
     Route: 048
     Dates: start: 201707
  342. BUDESONIDE [Suspect]
     Active Substance: BUDESONIDE
     Route: 048
  343. BUDESONIDE [Suspect]
     Active Substance: BUDESONIDE
     Route: 065
  344. BUDESONIDE [Suspect]
     Active Substance: BUDESONIDE
     Dosage: 1 DOSAGE FORM, QD, 1 DOSAGE FORM, 1 DOSE PER 1D
     Route: 048
  345. BUDESONIDE [Suspect]
     Active Substance: BUDESONIDE
     Dosage: 1 DOSAGE FORM, QD, 1 DOSAGE FORM, 1 DOSE PER 1D
     Route: 048
  346. BUDESONIDE [Suspect]
     Active Substance: BUDESONIDE
     Dosage: 1 DOSAGE FORM, QD, 1 DOSAGE FORM, 1 DOSE PER 1D
     Route: 048
  347. BUDESONIDE [Suspect]
     Active Substance: BUDESONIDE
     Route: 048
  348. BUDESONIDE [Suspect]
     Active Substance: BUDESONIDE
     Route: 048
  349. BUDESONIDE [Suspect]
     Active Substance: BUDESONIDE
     Dosage: 8 DOSAGE FORM, QD, 8 DOSAGE FORM, 1 DOSE PER 1 D
     Route: 048
  350. WARFARIN SODIUM [Suspect]
     Active Substance: WARFARIN SODIUM
     Indication: Deep vein thrombosis
     Dosage: 1 DOSAGE FORM, QD
     Route: 048
     Dates: start: 201707
  351. WARFARIN SODIUM [Suspect]
     Active Substance: WARFARIN SODIUM
     Indication: Colitis ulcerative
     Route: 065
     Dates: start: 201707
  352. WARFARIN SODIUM [Suspect]
     Active Substance: WARFARIN SODIUM
     Indication: Product used for unknown indication
     Route: 048
     Dates: start: 201707
  353. WARFARIN SODIUM [Suspect]
     Active Substance: WARFARIN SODIUM
     Indication: Crohn^s disease
     Route: 065
     Dates: start: 2019
  354. WARFARIN SODIUM [Suspect]
     Active Substance: WARFARIN SODIUM
     Route: 048
     Dates: start: 2009, end: 2009
  355. WARFARIN SODIUM [Suspect]
     Active Substance: WARFARIN SODIUM
     Route: 065
     Dates: end: 2019
  356. WARFARIN SODIUM [Suspect]
     Active Substance: WARFARIN SODIUM
     Dosage: UNK UNK, QD
     Route: 048
     Dates: start: 2009, end: 2009
  357. WARFARIN SODIUM [Suspect]
     Active Substance: WARFARIN SODIUM
     Route: 048
     Dates: start: 2019
  358. AMINOSALICYLIC ACID [Suspect]
     Active Substance: AMINOSALICYLIC ACID
     Indication: Product used for unknown indication
     Route: 048
     Dates: start: 2017
  359. VYVANSE [Suspect]
     Active Substance: LISDEXAMFETAMINE DIMESYLATE
     Indication: Attention deficit hyperactivity disorder
     Route: 065
  360. REMICADE [Suspect]
     Active Substance: INFLIXIMAB
     Indication: Crohn^s disease
     Route: 042
     Dates: start: 20170101, end: 20170901
  361. REMICADE [Suspect]
     Active Substance: INFLIXIMAB
     Indication: Colitis ulcerative
     Route: 042
     Dates: start: 201709
  362. REMICADE [Suspect]
     Active Substance: INFLIXIMAB
     Route: 042
     Dates: start: 20170101, end: 20170901
  363. ASPIRIN [Suspect]
     Active Substance: ASPIRIN
     Indication: Ill-defined disorder
     Route: 048
     Dates: start: 200707
  364. ASPIRIN [Suspect]
     Active Substance: ASPIRIN
     Indication: Colitis ulcerative
     Route: 065
  365. MESALAMINE [Suspect]
     Active Substance: MESALAMINE
     Indication: Colitis ulcerative
     Route: 048
  366. MESALAMINE [Suspect]
     Active Substance: MESALAMINE
     Route: 048
  367. MESALAMINE [Suspect]
     Active Substance: MESALAMINE
     Route: 065
  368. MESALAMINE [Suspect]
     Active Substance: MESALAMINE
     Route: 065
  369. MESALAMINE [Suspect]
     Active Substance: MESALAMINE
     Route: 065
  370. MESALAMINE [Suspect]
     Active Substance: MESALAMINE
     Route: 065
  371. MESALAMINE [Suspect]
     Active Substance: MESALAMINE
     Route: 065
  372. MESALAMINE [Suspect]
     Active Substance: MESALAMINE
     Route: 065
  373. MESALAMINE [Suspect]
     Active Substance: MESALAMINE
     Route: 065
  374. MESALAMINE [Suspect]
     Active Substance: MESALAMINE
     Dosage: 1 DOSAGE FORM, QD, 1 DOSE PER 1D
     Route: 048
  375. MESALAMINE [Suspect]
     Active Substance: MESALAMINE
     Dosage: 2.4 GRAM, QD, 1 DOSE PER 1D
     Route: 065
  376. MESALAMINE [Suspect]
     Active Substance: MESALAMINE
     Dosage: 3 GRAM, QD, 1 DOSE PER 1D
     Route: 065
  377. MESALAMINE [Suspect]
     Active Substance: MESALAMINE
     Dosage: 6 DOSAGE FORMS, QD, 3 DOSAGE FORM, 2 DOSE PER 1D
     Route: 065
  378. MESALAMINE [Suspect]
     Active Substance: MESALAMINE
     Route: 065
  379. MESALAMINE [Suspect]
     Active Substance: MESALAMINE
     Route: 065
  380. MESALAMINE [Suspect]
     Active Substance: MESALAMINE
     Route: 048
  381. MESALAMINE [Suspect]
     Active Substance: MESALAMINE
     Route: 048
  382. MESALAMINE [Suspect]
     Active Substance: MESALAMINE
     Route: 065
  383. MESALAMINE [Suspect]
     Active Substance: MESALAMINE
     Dosage: 6 DOSAGE FORM, QD, 1 DOSE PER 1D
     Route: 065
  384. MESALAMINE [Suspect]
     Active Substance: MESALAMINE
     Route: 048
  385. MESALAMINE [Suspect]
     Active Substance: MESALAMINE
     Dosage: 4.8 MILLIGRAM, QD
     Route: 065
  386. MESALAMINE [Suspect]
     Active Substance: MESALAMINE
     Route: 065
  387. MESALAMINE [Suspect]
     Active Substance: MESALAMINE
     Route: 065
  388. MESALAMINE [Suspect]
     Active Substance: MESALAMINE
     Dosage: UNK UNK, QD,  1 DOSE PER 1D
     Route: 065
  389. MESALAMINE [Suspect]
     Active Substance: MESALAMINE
     Dosage: 4.8 MILLIGRAM, QD
     Route: 065
  390. MESALAMINE [Suspect]
     Active Substance: MESALAMINE
     Route: 065
  391. MESALAMINE [Suspect]
     Active Substance: MESALAMINE
     Route: 065
  392. MESALAMINE [Suspect]
     Active Substance: MESALAMINE
     Route: 048
  393. MESALAMINE [Suspect]
     Active Substance: MESALAMINE
     Dosage: 2.4 GRAM, QD
     Route: 065
  394. MESALAMINE [Suspect]
     Active Substance: MESALAMINE
     Route: 048
  395. MESALAMINE [Suspect]
     Active Substance: MESALAMINE
     Route: 065
  396. MESALAMINE [Suspect]
     Active Substance: MESALAMINE
     Dosage: 6 DOSAGE FORM, QD
     Route: 048
  397. MESALAMINE [Suspect]
     Active Substance: MESALAMINE
     Route: 048
  398. LISDEXAMFETAMINE DIMESYLATE [Suspect]
     Active Substance: LISDEXAMFETAMINE DIMESYLATE
     Indication: Colitis ulcerative
     Route: 042
     Dates: start: 2017, end: 2017
  399. LISDEXAMFETAMINE DIMESYLATE [Suspect]
     Active Substance: LISDEXAMFETAMINE DIMESYLATE
     Indication: Product used for unknown indication
     Route: 065
  400. CANDESARTAN [Suspect]
     Active Substance: CANDESARTAN
     Indication: Product used for unknown indication
     Route: 048
  401. CANDESARTAN [Suspect]
     Active Substance: CANDESARTAN
     Indication: Colitis ulcerative
     Route: 048
     Dates: start: 20230412
  402. AZD-1222 [Suspect]
     Active Substance: AZD-1222
     Indication: COVID-19 immunisation
     Route: 065
     Dates: start: 20210318, end: 20210318
  403. AZD-1222 [Suspect]
     Active Substance: AZD-1222
     Route: 065
     Dates: start: 20210319, end: 20210319
  404. AZD-1222 [Suspect]
     Active Substance: AZD-1222
     Route: 065
     Dates: start: 20210521, end: 20210521
  405. AZD-1222 [Suspect]
     Active Substance: AZD-1222
     Route: 065
     Dates: start: 20210215, end: 20210215
  406. HUMIRA [Suspect]
     Active Substance: ADALIMUMAB
     Indication: Deep vein thrombosis
     Route: 065
  407. HUMIRA [Suspect]
     Active Substance: ADALIMUMAB
     Indication: Crohn^s disease
     Route: 065
  408. HUMIRA [Suspect]
     Active Substance: ADALIMUMAB
     Indication: Colitis ulcerative
     Route: 065
  409. HUMIRA [Suspect]
     Active Substance: ADALIMUMAB
     Route: 065
  410. HUMIRA [Suspect]
     Active Substance: ADALIMUMAB
     Route: 048
  411. HUMIRA [Suspect]
     Active Substance: ADALIMUMAB
     Route: 058
  412. HUMIRA [Suspect]
     Active Substance: ADALIMUMAB
     Route: 058
  413. AZD-1222 [Suspect]
     Active Substance: AZD-1222
     Indication: COVID-19 immunisation
     Route: 065
     Dates: start: 20210416, end: 20210416
  414. AZD-1222 [Suspect]
     Active Substance: AZD-1222
     Indication: Adverse drug reaction
     Route: 065
     Dates: start: 20210423, end: 20210423
  415. AZD-1222 [Suspect]
     Active Substance: AZD-1222
     Route: 065
     Dates: start: 20210416, end: 20210416
  416. AZD-1222 [Suspect]
     Active Substance: AZD-1222
     Route: 065
     Dates: start: 20210508, end: 20210508
  417. AZD-1222 [Suspect]
     Active Substance: AZD-1222
     Route: 065
     Dates: start: 20210130, end: 20210130
  418. AZD-1222 [Suspect]
     Active Substance: AZD-1222
     Route: 065
     Dates: start: 20210713, end: 20210713
  419. AZD-1222 [Suspect]
     Active Substance: AZD-1222
     Route: 065
     Dates: start: 2019, end: 2019
  420. AZD-1222 [Suspect]
     Active Substance: AZD-1222
     Route: 065
     Dates: start: 20210204, end: 20210204
  421. AZD-1222 [Suspect]
     Active Substance: AZD-1222
     Route: 065
     Dates: start: 20190319
  422. AZD-1222 [Suspect]
     Active Substance: AZD-1222
     Route: 065
     Dates: start: 20210423, end: 20210423
  423. AZD-1222 [Suspect]
     Active Substance: AZD-1222
     Route: 065
     Dates: start: 20210204, end: 20210204
  424. AZD-1222 [Suspect]
     Active Substance: AZD-1222
     Route: 065
     Dates: start: 20210521, end: 20210521
  425. AZD-1222 [Suspect]
     Active Substance: AZD-1222
     Route: 065
     Dates: start: 20210318, end: 20210318
  426. AZD-1222 [Suspect]
     Active Substance: AZD-1222
     Route: 065
     Dates: start: 20210215, end: 20210215
  427. AZD-1222 [Suspect]
     Active Substance: AZD-1222
     Route: 065
     Dates: start: 20210319, end: 20210319
  428. INFLECTRA [Suspect]
     Active Substance: INFLIXIMAB-DYYB
     Indication: Crohn^s disease
     Route: 065
  429. INFLECTRA [Suspect]
     Active Substance: INFLIXIMAB-DYYB
     Indication: Colitis ulcerative
     Route: 048
  430. INFLECTRA [Suspect]
     Active Substance: INFLIXIMAB-DYYB
     Route: 042
  431. INFLECTRA [Suspect]
     Active Substance: INFLIXIMAB-DYYB
     Route: 065
  432. INFLECTRA [Suspect]
     Active Substance: INFLIXIMAB-DYYB
     Route: 048
  433. INFLECTRA [Suspect]
     Active Substance: INFLIXIMAB-DYYB
     Route: 042
  434. INFLECTRA [Suspect]
     Active Substance: INFLIXIMAB-DYYB
     Route: 065
  435. INFLECTRA [Suspect]
     Active Substance: INFLIXIMAB-DYYB
     Route: 065
  436. INFLECTRA [Suspect]
     Active Substance: INFLIXIMAB-DYYB
     Route: 065
  437. OMEPRAZOLE [Suspect]
     Active Substance: OMEPRAZOLE
     Indication: Product used for unknown indication
     Route: 065
  438. OMEPRAZOLE [Suspect]
     Active Substance: OMEPRAZOLE
     Indication: Gastritis
     Route: 065
  439. OMEPRAZOLE [Suspect]
     Active Substance: OMEPRAZOLE
     Dosage: 40 MG, QD
     Route: 065
  440. PARA-AMINOSALICYLIC ACID [Suspect]
     Active Substance: AMINOSALICYLIC ACID
     Indication: Product used for unknown indication
     Route: 048
  441. TOZINAMERAN [Suspect]
     Active Substance: TOZINAMERAN
     Indication: Product used for unknown indication
     Route: 065
     Dates: start: 20220322, end: 20220322
  442. ROSUVASTATIN [Suspect]
     Active Substance: ROSUVASTATIN
     Indication: Blood cholesterol increased
     Route: 065
  443. ROSUVASTATIN [Suspect]
     Active Substance: ROSUVASTATIN
     Route: 065
  444. ROSUVASTATIN [Suspect]
     Active Substance: ROSUVASTATIN
     Dosage: 10 MILLIGRAM, QD, 10 MILLIGRAM, 1 DOSE PER 1 D
     Route: 065
  445. FELODIPINE [Suspect]
     Active Substance: FELODIPINE
     Indication: Hypertension
     Dosage: 3 MILLIGRAM, QD
     Route: 048
  446. FELODIPINE [Suspect]
     Active Substance: FELODIPINE
     Dosage: 5 MILLIGRAM, QD, 2.5 MILLIGRAM, 2 DOSE PER 1 D
     Route: 048
  447. FELODIPINE [Suspect]
     Active Substance: FELODIPINE
     Dosage: 2.5 MILLIGRAM, QD
     Route: 048
  448. FUROSEMIDE [Suspect]
     Active Substance: FUROSEMIDE
     Indication: Product used for unknown indication
     Route: 065
  449. FUROSEMIDE [Suspect]
     Active Substance: FUROSEMIDE
     Dosage: 20 MILLIGRAM, QD
     Route: 065
  450. OXYCODONE [Suspect]
     Active Substance: OXYCODONE
     Indication: Product used for unknown indication
     Route: 065
  451. OXYCODONE [Suspect]
     Active Substance: OXYCODONE
     Dosage: 10 MG, QD, 5 MILLIGRAM, 2 DOSE PER 1 D
     Route: 065
  452. COMIRNATY (BNT162B2 OMICRON (KP.2)) [Suspect]
     Active Substance: BNT162B2 OMICRON (KP.2)
     Indication: Product used for unknown indication
     Route: 065
  453. EPINEPHRINE HYDROCHLORIDE [Suspect]
     Active Substance: EPINEPHRINE HYDROCHLORIDE
     Indication: Product used for unknown indication
     Route: 065
  454. DESOXIMETASONE [Suspect]
     Active Substance: DESOXIMETASONE
     Indication: Crohn^s disease
     Dosage: 1 DOSAGE FORM, QD
     Route: 065
  455. DESOXIMETASONE [Suspect]
     Active Substance: DESOXIMETASONE
     Indication: Colitis ulcerative
     Route: 065
  456. DESOXIMETASONE [Suspect]
     Active Substance: DESOXIMETASONE
     Dosage: 8 DOSAGE FORM, QD
     Route: 048
  457. DESOXIMETASONE [Suspect]
     Active Substance: DESOXIMETASONE
     Route: 065
  458. DESOXIMETASONE [Suspect]
     Active Substance: DESOXIMETASONE
     Route: 048
  459. WARFARIN SODIUM [Suspect]
     Active Substance: WARFARIN SODIUM
     Indication: Deep vein thrombosis
     Route: 048
  460. WARFARIN SODIUM [Suspect]
     Active Substance: WARFARIN SODIUM
     Indication: Colitis ulcerative
     Route: 065
     Dates: start: 2019
  461. WARFARIN SODIUM [Suspect]
     Active Substance: WARFARIN SODIUM
     Dosage: 1 DOSAGE FORM, QD
     Route: 048
  462. WARFARIN SODIUM [Suspect]
     Active Substance: WARFARIN SODIUM
     Route: 048
  463. WARFARIN SODIUM [Suspect]
     Active Substance: WARFARIN SODIUM
     Route: 048
  464. WARFARIN SODIUM [Suspect]
     Active Substance: WARFARIN SODIUM
     Route: 048
  465. DAPAGLIFLOZIN [Suspect]
     Active Substance: DAPAGLIFLOZIN
     Indication: Ill-defined disorder
     Route: 065
  466. DAPAGLIFLOZIN [Suspect]
     Active Substance: DAPAGLIFLOZIN
     Indication: Cardiac failure chronic
  467. MEBEVERINE [Suspect]
     Active Substance: MEBEVERINE
     Indication: Product used for unknown indication
     Route: 065
  468. GABAPENTIN [Suspect]
     Active Substance: GABAPENTIN
     Indication: Product used for unknown indication
     Route: 065
  469. GABAPENTIN [Suspect]
     Active Substance: GABAPENTIN
     Dosage: 900 MILLIGRAM, QD, 300 MILLIGRAM, 3 DOSE PER 1 D / 900 MG 1 DAY
     Route: 065
  470. METFORMIN [Suspect]
     Active Substance: METFORMIN HYDROCHLORIDE
     Indication: Product used for unknown indication
     Route: 065
  471. METFORMIN [Suspect]
     Active Substance: METFORMIN HYDROCHLORIDE
     Dosage: 1000 MILLIGRAM, QD, 500 MILLIGRAM, 2 DOSE PER 1 D
     Route: 065
  472. VITAMIN D3 [Suspect]
     Active Substance: CHOLECALCIFEROL
     Indication: Product used for unknown indication
     Route: 065
  473. VITAMIN D3 [Suspect]
     Active Substance: CHOLECALCIFEROL
     Dosage: 100 MILLIGRAM, QD
     Route: 065
  474. CHOLECALCIFEROL [Suspect]
     Active Substance: CHOLECALCIFEROL
     Indication: Product used for unknown indication
     Route: 065
  475. LEVOTHYROXINE [Suspect]
     Active Substance: LEVOTHYROXINE
     Indication: Product used for unknown indication
     Route: 065
  476. LEVOTHYROXINE [Suspect]
     Active Substance: LEVOTHYROXINE
     Route: 065
  477. INFLIXIMAB [Suspect]
     Active Substance: INFLIXIMAB
     Indication: Colitis ulcerative
     Route: 042
     Dates: start: 201707
  478. INFLIXIMAB [Suspect]
     Active Substance: INFLIXIMAB
     Indication: Crohn^s disease
     Route: 042
  479. INFLIXIMAB [Suspect]
     Active Substance: INFLIXIMAB
     Route: 042
  480. INFLIXIMAB [Suspect]
     Active Substance: INFLIXIMAB
     Route: 042
  481. INFLIXIMAB [Suspect]
     Active Substance: INFLIXIMAB
     Route: 042
     Dates: start: 20170119
  482. INFLIXIMAB [Suspect]
     Active Substance: INFLIXIMAB
     Route: 065
     Dates: start: 20171019
  483. INFLIXIMAB [Suspect]
     Active Substance: INFLIXIMAB
     Route: 042
  484. INFLIXIMAB [Suspect]
     Active Substance: INFLIXIMAB
     Route: 065
  485. INFLIXIMAB [Suspect]
     Active Substance: INFLIXIMAB
     Route: 065
  486. INFLIXIMAB [Suspect]
     Active Substance: INFLIXIMAB
     Route: 042
     Dates: start: 20170101, end: 20170901
  487. INFLIXIMAB [Suspect]
     Active Substance: INFLIXIMAB
     Route: 042
  488. INFLIXIMAB [Suspect]
     Active Substance: INFLIXIMAB
     Route: 042
  489. INFLIXIMAB [Suspect]
     Active Substance: INFLIXIMAB
     Route: 042
     Dates: start: 20170101, end: 20170901
  490. INFLIXIMAB [Suspect]
     Active Substance: INFLIXIMAB
     Route: 065
  491. INFLIXIMAB [Suspect]
     Active Substance: INFLIXIMAB
     Route: 042
  492. INFLIXIMAB [Suspect]
     Active Substance: INFLIXIMAB
     Route: 042
  493. ESCITALOPRAM [Suspect]
     Active Substance: ESCITALOPRAM OXALATE
     Indication: Product used for unknown indication
     Route: 065
  494. ESCITALOPRAM [Suspect]
     Active Substance: ESCITALOPRAM OXALATE
     Dosage: 10 MILLIGRAM, QD
     Route: 065
  495. CORTIFOAM [Suspect]
     Active Substance: HYDROCORTISONE ACETATE
     Indication: Deep vein thrombosis
     Route: 048
  496. CORTIFOAM [Suspect]
     Active Substance: HYDROCORTISONE ACETATE
     Indication: Colitis ulcerative
     Route: 065
  497. CORTIFOAM [Suspect]
     Active Substance: HYDROCORTISONE ACETATE
     Dosage: 1 DOSAGE FORM, QD, 1 DOSAGE FORM, 1 DOSE PER 1D
     Route: 048
     Dates: start: 201707
  498. CORTIFOAM [Suspect]
     Active Substance: HYDROCORTISONE ACETATE
     Dosage: 1 DOSAGE FORM, QD
     Route: 065
  499. CORTIFOAM [Suspect]
     Active Substance: HYDROCORTISONE ACETATE
     Route: 048
     Dates: start: 201707
  500. CORTIFOAM [Suspect]
     Active Substance: HYDROCORTISONE ACETATE
     Route: 065
  501. CORTIFOAM [Suspect]
     Active Substance: HYDROCORTISONE ACETATE
     Dosage: UNK UNK, QD, 1 DOSE PER 1D
     Route: 065
  502. CORTIFOAM [Suspect]
     Active Substance: HYDROCORTISONE ACETATE
     Route: 048
  503. CANDESARTAN [Suspect]
     Active Substance: CANDESARTAN
     Indication: Product used for unknown indication
     Route: 048
     Dates: start: 20230412
  504. ACETAMINOPHEN [Suspect]
     Active Substance: ACETAMINOPHEN
     Indication: Ill-defined disorder
     Dosage: 2000 MILLIGRAM, QD (500 MILLIGRAM, 4 DOSE PER 1 D)
     Route: 065
  505. ACETAMINOPHEN [Suspect]
     Active Substance: ACETAMINOPHEN
     Route: 065
  506. CORTISONE (HYDROCORTISONE) [Suspect]
     Active Substance: HYDROCORTISONE
     Indication: Crohn^s disease
     Route: 042
  507. CORTISONE (HYDROCORTISONE) [Suspect]
     Active Substance: HYDROCORTISONE
     Indication: Colitis ulcerative
     Dosage: UNK, QD, 1 DOSE PER 1D
     Route: 065
  508. CORTISONE (HYDROCORTISONE) [Suspect]
     Active Substance: HYDROCORTISONE
     Route: 065
  509. CORTISONE (HYDROCORTISONE) [Suspect]
     Active Substance: HYDROCORTISONE
     Dosage: 1 DOSAGE FORM, QD, 1 DOSAGE FORM, 1 DOSE PER 1D
     Route: 048
  510. CORTISONE (HYDROCORTISONE) [Suspect]
     Active Substance: HYDROCORTISONE
     Dosage: 8 DOSAGE FORM, QD, 8 DOSAGE FORM, 1 DOSE PER 1D
     Route: 048
  511. CORTISONE (HYDROCORTISONE) [Suspect]
     Active Substance: HYDROCORTISONE
     Route: 065
  512. CORTISONE (HYDROCORTISONE) [Suspect]
     Active Substance: HYDROCORTISONE
     Route: 048
  513. CORTISONE (HYDROCORTISONE) [Suspect]
     Active Substance: HYDROCORTISONE
     Route: 048
  514. CORTISONE (HYDROCORTISONE) [Suspect]
     Active Substance: HYDROCORTISONE
     Route: 065
  515. CORTISONE (HYDROCORTISONE) [Suspect]
     Active Substance: HYDROCORTISONE
     Route: 048
  516. CORTISONE (HYDROCORTISONE) [Suspect]
     Active Substance: HYDROCORTISONE
     Route: 048
  517. CORTISONE (HYDROCORTISONE) [Suspect]
     Active Substance: HYDROCORTISONE
     Route: 065
  518. MEBEVERINE HYDROCHLORIDE [Suspect]
     Active Substance: MEBEVERINE HYDROCHLORIDE
     Indication: Product used for unknown indication
     Route: 065
  519. MEBEVERINE HYDROCHLORIDE [Suspect]
     Active Substance: MEBEVERINE HYDROCHLORIDE
     Dosage: 400 MILLIGRAM, QD, 200 MILLIGRAM, 2 DOSE PER 1 D
     Route: 065
  520. ESOMEPRAZOLE [Suspect]
     Active Substance: ESOMEPRAZOLE
     Indication: Gastritis
     Route: 065
  521. ALBENDAZOLE [Suspect]
     Active Substance: ALBENDAZOLE
     Indication: Product used for unknown indication
     Route: 065
     Dates: start: 20210215, end: 20210215
  522. ALBENDAZOLE [Suspect]
     Active Substance: ALBENDAZOLE
     Indication: Deep vein thrombosis
     Route: 042
     Dates: start: 2021
  523. ALBENDAZOLE [Suspect]
     Active Substance: ALBENDAZOLE
     Indication: Colitis ulcerative
     Route: 042
     Dates: start: 2017, end: 2017
  524. ALBENDAZOLE [Suspect]
     Active Substance: ALBENDAZOLE
     Route: 048
  525. SULFASALAZINE [Concomitant]
     Active Substance: SULFASALAZINE
     Indication: Colitis ulcerative
     Route: 065
     Dates: start: 2009, end: 2016
  526. SULFASALAZINE [Concomitant]
     Active Substance: SULFASALAZINE
     Indication: Arthritis
     Route: 065
     Dates: start: 20160101, end: 20160101
  527. SULFASALAZINE [Concomitant]
     Active Substance: SULFASALAZINE
     Indication: Colitis ulcerative
     Route: 065
     Dates: start: 20090101, end: 20160101
  528. SULFASALAZINE [Concomitant]
     Active Substance: SULFASALAZINE
     Indication: Product used for unknown indication
     Route: 065
     Dates: start: 201709, end: 201709
  529. SULFASALAZINE [Concomitant]
     Active Substance: SULFASALAZINE
     Route: 065
     Dates: start: 20091001, end: 20161001
  530. SULFASALAZINE [Concomitant]
     Active Substance: SULFASALAZINE
     Route: 065
  531. SULFASALAZINE [Concomitant]
     Active Substance: SULFASALAZINE
     Route: 065
  532. ALBENDAZOLE [Concomitant]
     Active Substance: ALBENDAZOLE
     Indication: Crohn^s disease
     Route: 048
  533. ALBENDAZOLE [Concomitant]
     Active Substance: ALBENDAZOLE
     Indication: Colitis ulcerative
     Route: 048
     Dates: start: 20090101, end: 20160101
  534. ALBENDAZOLE [Concomitant]
     Active Substance: ALBENDAZOLE
     Indication: Deep vein thrombosis
     Route: 065
  535. BUDESONIDE [Concomitant]
     Active Substance: BUDESONIDE
     Indication: Colitis ulcerative
     Route: 048
  536. METHOTREXATE [Concomitant]
     Active Substance: METHOTREXATE
     Indication: Colitis ulcerative
     Route: 065
  537. METHOTREXATE [Concomitant]
     Active Substance: METHOTREXATE
     Route: 065
     Dates: start: 20090101, end: 20160101
  538. METHOTREXATE [Concomitant]
     Active Substance: METHOTREXATE
     Route: 065
     Dates: start: 201709, end: 201709
  539. METHOTREXATE [Concomitant]
     Active Substance: METHOTREXATE
     Route: 065
     Dates: start: 20160101
  540. METHOTREXATE [Concomitant]
     Active Substance: METHOTREXATE
     Route: 065
     Dates: start: 2009, end: 2016
  541. METHOTREXATE [Concomitant]
     Active Substance: METHOTREXATE
     Route: 065
  542. METHOTREXATE [Concomitant]
     Active Substance: METHOTREXATE
     Route: 065
     Dates: start: 201909
  543. METHOTREXATE [Concomitant]
     Active Substance: METHOTREXATE
     Route: 065
  544. HUMIRA [Concomitant]
     Active Substance: ADALIMUMAB
     Indication: Crohn^s disease
     Route: 065
  545. HUMIRA [Concomitant]
     Active Substance: ADALIMUMAB
     Indication: Deep vein thrombosis
     Route: 065
  546. HUMIRA [Concomitant]
     Active Substance: ADALIMUMAB
     Indication: Colitis ulcerative
     Route: 048
     Dates: start: 201707
  547. HUMIRA [Concomitant]
     Active Substance: ADALIMUMAB
     Route: 065
     Dates: start: 201709, end: 201709
  548. PREDNISONE [Concomitant]
     Active Substance: PREDNISONE
     Indication: Colitis ulcerative
     Route: 065
  549. PREDNISONE [Concomitant]
     Active Substance: PREDNISONE
     Dosage: 40 MILLIGRAM, QD
     Route: 048
  550. XELJANZ [Concomitant]
     Active Substance: TOFACITINIB CITRATE
     Indication: Colitis ulcerative
     Dosage: 10 MILLIGRAM, QD, (5MG BID)
     Route: 048
  551. XELJANZ [Concomitant]
     Active Substance: TOFACITINIB CITRATE
     Route: 048
  552. XELJANZ [Concomitant]
     Active Substance: TOFACITINIB CITRATE
     Dosage: 20 MILLIGRAM, QD (10 MILLIGRAM, 2 DOSE PER 1 D)
     Route: 048
  553. XELJANZ [Concomitant]
     Active Substance: TOFACITINIB CITRATE
     Dosage: 10 MILLIGRAM, QD (1 DOSE PER 1D)
     Route: 048
  554. XELJANZ [Concomitant]
     Active Substance: TOFACITINIB CITRATE
     Dosage: 5 MILLIGRAM, QD (1 DOSE PER 1D)
     Route: 048
  555. XELJANZ [Concomitant]
     Active Substance: TOFACITINIB CITRATE
     Route: 048
  556. TOFACITINIB CITRATE [Concomitant]
     Active Substance: TOFACITINIB CITRATE
     Indication: Product used for unknown indication
     Route: 065
  557. TOFACITINIB CITRATE [Concomitant]
     Active Substance: TOFACITINIB CITRATE
     Route: 065
  558. SULFASALAZINE [Concomitant]
     Active Substance: SULFASALAZINE
     Indication: Colitis ulcerative
     Dosage: 3 MILLIGRAM, QD
     Route: 048
  559. SULFASALAZINE [Concomitant]
     Active Substance: SULFASALAZINE
     Dosage: 5 MILLIGRAM, QD
     Route: 048
  560. HYDROCORTISONE [Concomitant]
     Active Substance: HYDROCORTISONE
     Indication: Colitis ulcerative
     Dosage: 1 DOSAGE FORM, QD
     Route: 048
  561. MESALAMINE [Concomitant]
     Active Substance: MESALAMINE
     Indication: Colitis ulcerative
     Route: 065
  562. MOVICOL [Concomitant]
     Active Substance: POLYETHYLENE GLYCOL 3350\POTASSIUM CHLORIDE\SODIUM BICARBONATE\SODIUM CHLORIDE
     Indication: Product used for unknown indication
     Route: 065
  563. MOVICOL [Concomitant]
     Active Substance: POLYETHYLENE GLYCOL 3350\POTASSIUM CHLORIDE\SODIUM BICARBONATE\SODIUM CHLORIDE
     Indication: Ill-defined disorder
     Route: 065
  564. LATANOPROST [Concomitant]
     Active Substance: LATANOPROST
     Indication: Product used for unknown indication
     Route: 065
  565. POLYETHYLENE GLYCOL 3350\POTASSIUM CHLORIDE\SODIUM BICARBONATE\SODIUM [Concomitant]
     Active Substance: POLYETHYLENE GLYCOL 3350\POTASSIUM CHLORIDE\SODIUM BICARBONATE\SODIUM CHLORIDE
     Indication: Product used for unknown indication
     Route: 065
  566. LYRICA [Concomitant]
     Active Substance: PREGABALIN
     Indication: Product used for unknown indication
     Route: 065
  567. CALCIUM CARBONATE\CHOLECALCIFEROL [Concomitant]
     Active Substance: CALCIUM CARBONATE\CHOLECALCIFEROL
     Indication: Product used for unknown indication
     Route: 065
  568. GAVISCON [ALUMINIUM HYDROXIDE;CALCIUM CARBONATE;SODIUM ALGINATE;SODIUM [Concomitant]
     Indication: Product used for unknown indication
     Route: 065
  569. MINERAL OIL [Concomitant]
     Active Substance: MINERAL OIL
     Indication: Product used for unknown indication
     Route: 065
  570. ATORVASTATIN [Concomitant]
     Active Substance: ATORVASTATIN
     Indication: Product used for unknown indication
     Route: 065
  571. NITROFURANTOIN [Concomitant]
     Active Substance: NITROFURANTOIN
     Indication: Product used for unknown indication
     Route: 065
  572. NITROFURANTOIN [Concomitant]
     Active Substance: NITROFURANTOIN
     Indication: Ill-defined disorder
  573. LATANOPROST [Concomitant]
     Active Substance: LATANOPROST
     Indication: Product used for unknown indication
     Route: 065
  574. ACETAMINOPHEN [Concomitant]
     Active Substance: ACETAMINOPHEN
     Indication: Product used for unknown indication
     Route: 065
  575. LANSOPRAZOLE [Concomitant]
     Active Substance: LANSOPRAZOLE
     Indication: Product used for unknown indication
     Route: 065
  576. PRAVASTATIN [Concomitant]
     Active Substance: PRAVASTATIN
     Indication: Product used for unknown indication
     Route: 065
  577. CITALOPRAM [Concomitant]
     Active Substance: CITALOPRAM
     Indication: Product used for unknown indication
     Route: 065
  578. CITALOPRAM [Concomitant]
     Active Substance: CITALOPRAM
     Indication: Ill-defined disorder
  579. FOLIC ACID [Concomitant]
     Active Substance: FOLIC ACID
     Indication: Product used for unknown indication
     Route: 065
  580. FOLIC ACID [Concomitant]
     Active Substance: FOLIC ACID
     Indication: Ill-defined disorder
  581. CLOBETASONE BUTYRATE [Concomitant]
     Active Substance: CLOBETASONE BUTYRATE
     Indication: Product used for unknown indication
     Route: 065
  582. CLOBETASONE BUTYRATE [Concomitant]
     Active Substance: CLOBETASONE BUTYRATE
     Indication: Ill-defined disorder
  583. TAMSULOSIN HYDROCHLORIDE [Concomitant]
     Active Substance: TAMSULOSIN HYDROCHLORIDE
     Indication: Product used for unknown indication
     Route: 065
  584. TAMSULOSIN HYDROCHLORIDE [Concomitant]
     Active Substance: TAMSULOSIN HYDROCHLORIDE
     Indication: Ill-defined disorder
  585. BISOPROLOL [Concomitant]
     Active Substance: BISOPROLOL
     Indication: Product used for unknown indication
     Route: 065
  586. ROSUVASTATIN [Concomitant]
     Active Substance: ROSUVASTATIN
     Indication: Product used for unknown indication
     Route: 065
  587. RAMIPRIL [Concomitant]
     Active Substance: RAMIPRIL
     Indication: Product used for unknown indication
     Route: 065
  588. RAMIPRIL [Concomitant]
     Active Substance: RAMIPRIL
     Indication: Ill-defined disorder
  589. RIVAROXABAN [Concomitant]
     Active Substance: RIVAROXABAN
     Indication: Product used for unknown indication
     Route: 065
  590. AMLODIPINE [Concomitant]
     Active Substance: AMLODIPINE BESYLATE
     Indication: Product used for unknown indication
     Route: 065
  591. EMPAGLIFLOZIN [Concomitant]
     Active Substance: EMPAGLIFLOZIN
     Indication: Product used for unknown indication
     Route: 065
  592. FESOTERODINE FUMARATE [Concomitant]
     Active Substance: FESOTERODINE FUMARATE
     Indication: Product used for unknown indication
     Route: 065
  593. BETNOVATE [Concomitant]
     Active Substance: BETAMETHASONE
     Indication: Product used for unknown indication
     Route: 065
  594. DORZOLAMIDE HYDROCHLORIDE [Concomitant]
     Active Substance: DORZOLAMIDE HYDROCHLORIDE
     Indication: Product used for unknown indication
     Route: 065
  595. TETRAHYDROZOLINE HYDROCHLORIDE [Concomitant]
     Active Substance: TETRAHYDROZOLINE HYDROCHLORIDE
     Indication: Product used for unknown indication
     Route: 065
  596. TETRAHYDROZOLINE HYDROCHLORIDE [Concomitant]
     Active Substance: TETRAHYDROZOLINE HYDROCHLORIDE
     Route: 065
  597. ASPIRIN [Concomitant]
     Active Substance: ASPIRIN
     Indication: Product used for unknown indication
     Route: 065
  598. OMEPRAZOLE [Concomitant]
     Active Substance: OMEPRAZOLE
     Indication: Product used for unknown indication
     Route: 065
  599. LATANOPROST [Concomitant]
     Active Substance: LATANOPROST
     Indication: Crohn^s disease
     Route: 065
  600. LATANOPROST [Concomitant]
     Active Substance: LATANOPROST
     Indication: Colitis ulcerative
     Route: 065
  601. POLYETHYLENE GLYCOLS [Concomitant]
     Active Substance: POLYETHYLENE GLYCOLS
     Indication: Product used for unknown indication
     Route: 065
  602. AMLODIPINE BESYLATE [Concomitant]
     Active Substance: AMLODIPINE BESYLATE
     Indication: Product used for unknown indication
     Route: 065
  603. ATORVASTATIN CALCIUM [Concomitant]
     Active Substance: ATORVASTATIN CALCIUM
     Indication: Product used for unknown indication
     Route: 065
  604. DORZOLAMIDE HYDROCHLORIDE [Concomitant]
     Active Substance: DORZOLAMIDE HYDROCHLORIDE
     Indication: Ill-defined disorder
     Route: 065
  605. RIVAROXABAN [Concomitant]
     Active Substance: RIVAROXABAN
     Indication: Ill-defined disorder
     Route: 065
  606. BISOPROLOL [Concomitant]
     Active Substance: BISOPROLOL
     Indication: Dyscalculia
     Route: 065
  607. BISOPROLOL [Concomitant]
     Active Substance: BISOPROLOL
     Indication: Ill-defined disorder
  608. EMPAGLIFLOZIN [Concomitant]
     Active Substance: EMPAGLIFLOZIN
     Indication: Ill-defined disorder
     Route: 065
  609. PRAVASTATIN [Concomitant]
     Active Substance: PRAVASTATIN
     Indication: Ill-defined disorder
     Route: 065
  610. LANSOPRAZOLE [Concomitant]
     Active Substance: LANSOPRAZOLE
     Indication: Ill-defined disorder
     Route: 065
  611. LYRICA [Concomitant]
     Active Substance: PREGABALIN
     Indication: Ill-defined disorder
     Route: 065
  612. ALGINIC ACID;ALUMINIUM HYDROXIDE GEL, DRIED;MAGNESIUM TRISILICATE;SODI [Concomitant]
     Indication: Product used for unknown indication
     Route: 065
  613. CALCIUM CARBONATE\SODIUM ALGINATE\SODIUM BICARBONATE [Concomitant]
     Active Substance: CALCIUM CARBONATE\SODIUM ALGINATE\SODIUM BICARBONATE
     Indication: Product used for unknown indication
     Route: 065
  614. CALCIUM CARBONATE\CHOLECALCIFEROL [Concomitant]
     Active Substance: CALCIUM CARBONATE\CHOLECALCIFEROL
     Indication: Product used for unknown indication
     Route: 065
  615. LIGHT MINERAL OIL [Concomitant]
     Active Substance: LIGHT MINERAL OIL
     Indication: Ill-defined disorder
     Route: 065
  616. NAPHAZOLINE HYDROCHLORIDE [Concomitant]
     Active Substance: NAPHAZOLINE HYDROCHLORIDE
     Indication: Ill-defined disorder
     Route: 065
  617. PARAFFIN [Concomitant]
     Active Substance: PARAFFIN
     Indication: Product used for unknown indication
     Route: 065
  618. TETRAHYDROZOLINE HYDROCHLORIDE [Concomitant]
     Active Substance: TETRAHYDROZOLINE HYDROCHLORIDE
     Indication: Crohn^s disease
     Route: 065
  619. TETRAHYDROZOLINE HYDROCHLORIDE [Concomitant]
     Active Substance: TETRAHYDROZOLINE HYDROCHLORIDE
     Indication: Colitis ulcerative
  620. DAPAGLIFLOZIN [Concomitant]
     Active Substance: DAPAGLIFLOZIN
     Indication: Product used for unknown indication
     Route: 065
  621. CALCIUM CARBONATE;SODIUM ALGINATE [Concomitant]
     Indication: Product used for unknown indication
     Route: 065
  622. CALCIUM CARBONATE;MAGNESIUM CARBONATE [Concomitant]
     Indication: Product used for unknown indication
     Route: 065

REACTIONS (54)
  - Loss of personal independence in daily activities [Unknown]
  - Bronchiectasis [Not Recovered/Not Resolved]
  - Weight decreased [Not Recovered/Not Resolved]
  - Loss of personal independence in daily activities [Unknown]
  - Colitis ulcerative [Unknown]
  - Colitis ulcerative [Unknown]
  - Condition aggravated [Unknown]
  - Impaired quality of life [Unknown]
  - Frequent bowel movements [Not Recovered/Not Resolved]
  - Stress [Not Recovered/Not Resolved]
  - Steroid dependence [Not Recovered/Not Resolved]
  - Impaired work ability [Unknown]
  - Deep vein thrombosis [Unknown]
  - Haematochezia [Not Recovered/Not Resolved]
  - Rectal haemorrhage [Unknown]
  - Abdominal discomfort [Not Recovered/Not Resolved]
  - Arthritis [Not Recovered/Not Resolved]
  - Burns second degree [Not Recovered/Not Resolved]
  - Cardiac murmur [Not Recovered/Not Resolved]
  - Catarrh [Not Recovered/Not Resolved]
  - Cerebrovascular accident [Not Recovered/Not Resolved]
  - Confusional state [Not Recovered/Not Resolved]
  - Depression [Not Recovered/Not Resolved]
  - COVID-19 [Not Recovered/Not Resolved]
  - Dysgeusia [Not Recovered/Not Resolved]
  - Eczema [Not Recovered/Not Resolved]
  - Fatigue [Not Recovered/Not Resolved]
  - Gingival pain [Not Recovered/Not Resolved]
  - Hypopnoea [Not Recovered/Not Resolved]
  - Migraine [Not Recovered/Not Resolved]
  - Nightmare [Not Recovered/Not Resolved]
  - Pain [Not Recovered/Not Resolved]
  - Pain in extremity [Not Recovered/Not Resolved]
  - Palpitations [Not Recovered/Not Resolved]
  - Parosmia [Not Recovered/Not Resolved]
  - Pulmonary embolism [Not Recovered/Not Resolved]
  - Pyrexia [Not Recovered/Not Resolved]
  - Rash [Not Recovered/Not Resolved]
  - Rhinitis [Not Recovered/Not Resolved]
  - Somnolence [Not Recovered/Not Resolved]
  - Swollen tongue [Not Recovered/Not Resolved]
  - Systemic lupus erythematosus [Not Recovered/Not Resolved]
  - Tinnitus [Not Recovered/Not Resolved]
  - Tubulointerstitial nephritis [Not Recovered/Not Resolved]
  - Vertigo [Not Recovered/Not Resolved]
  - Alcohol poisoning [Not Recovered/Not Resolved]
  - Accidental overdose [Not Recovered/Not Resolved]
  - Medication error [Unknown]
  - Product use in unapproved indication [Unknown]
  - Inappropriate schedule of product administration [Not Recovered/Not Resolved]
  - Intentional product use issue [Not Recovered/Not Resolved]
  - Off label use [Unknown]
  - Off label use [Not Recovered/Not Resolved]
  - Drug ineffective [Unknown]

NARRATIVE: CASE EVENT DATE: 20080101
